FAERS Safety Report 12985934 (Version 2)
Quarter: 2016Q4

REPORT INFORMATION
  Report Type: Spontaneous
  Country: AU (occurrence: AU)
  Receive Date: 20161130
  Receipt Date: 20161222
  Transmission Date: 20170207
  Serious: Yes (Hospitalization, Other)
  Sender: FDA-Public Use
  Company Number: AU-ALEXION PHARMACEUTICALS INC-A201609196

PATIENT
  Age: 28 Year
  Sex: Female

DRUGS (2)
  1. OESTRADIOL                         /00045401/ [Concomitant]
     Indication: PRODUCT USED FOR UNKNOWN INDICATION
     Route: 065
  2. SOLIRIS [Suspect]
     Active Substance: ECULIZUMAB
     Indication: HAEMOLYTIC URAEMIC SYNDROME
     Dosage: UNK UNK, QW
     Route: 042

REACTIONS (4)
  - Anuria [Unknown]
  - Pulmonary oedema [Unknown]
  - Lung disorder [Unknown]
  - Renal failure [Unknown]
